FAERS Safety Report 9764907 (Version 3)
Quarter: 2014Q2

REPORT INFORMATION
  Report Type: Spontaneous
  Country: US (occurrence: US)
  Receive Date: 20131217
  Receipt Date: 20140519
  Transmission Date: 20141212
  Serious: No
  Sender: FDA-Public Use
  Company Number: US-BIOGENIDEC-2013BI110343

PATIENT
  Age: 57 Year
  Sex: Female

DRUGS (23)
  1. TECFIDERA [Suspect]
     Indication: MULTIPLE SCLEROSIS
     Route: 048
     Dates: start: 20131025
  2. TECFIDERA [Suspect]
     Indication: MULTIPLE SCLEROSIS
     Route: 048
     Dates: start: 20131025
  3. BACLOFEN [Concomitant]
  4. CALTRATE 600 + D [Concomitant]
  5. COD LIVER OIL [Concomitant]
  6. DIAZEPAM [Concomitant]
  7. GABAPENTIN [Concomitant]
  8. HYDROCODONE ACETAMINOPHEN [Concomitant]
  9. LEVOXYL [Concomitant]
  10. METHADONE HCL [Concomitant]
  11. OXYCARBAZEPINE [Concomitant]
  12. REMERON [Concomitant]
  13. VITAMIN C [Concomitant]
  14. TRAZODONE HCL [Concomitant]
  15. VITAMIN D [Concomitant]
  16. DYAZIDE [Concomitant]
  17. JUICE PLUS FIBRE [Concomitant]
  18. NORCO [Concomitant]
  19. RECLAST [Concomitant]
  20. TRILEPTAL [Concomitant]
  21. TYLENOL [Concomitant]
  22. VALIUM [Concomitant]
  23. VITAMIN D3 [Concomitant]

REACTIONS (10)
  - Hypoaesthesia [Unknown]
  - Myalgia [Unknown]
  - Pain [Unknown]
  - Night sweats [Unknown]
  - Muscular weakness [Unknown]
  - Headache [Unknown]
  - Flushing [Unknown]
  - Generalised erythema [Unknown]
  - Rash [Unknown]
  - Nausea [Unknown]
